FAERS Safety Report 10051347 (Version 1)
Quarter: 2014Q2

REPORT INFORMATION
  Report Type: Spontaneous
  Country: US (occurrence: US)
  Receive Date: 20140401
  Receipt Date: 20140401
  Transmission Date: 20141212
  Serious: No
  Sender: FDA-Public Use
  Company Number: US-PFIZER INC-2014089375

PATIENT
  Age: 61 Year
  Sex: Female
  Weight: 90.7 kg

DRUGS (1)
  1. CELEBREX [Suspect]
     Indication: PAIN
     Dosage: 400 MG (BY TAKING TWO CAPSULES OF 200MG IN THE MORNING), 1X/DAY
     Route: 048
     Dates: end: 201403

REACTIONS (2)
  - Pain [Unknown]
  - Mood altered [Unknown]
